FAERS Safety Report 20830068 (Version 3)
Quarter: 2022Q2

REPORT INFORMATION
  Report Type: Report from Study
  Country: BR (occurrence: BR)
  Receive Date: 20220514
  Receipt Date: 20220524
  Transmission Date: 20220721
  Serious: Yes (Hospitalization, Other)
  Sender: FDA-Public Use
  Company Number: BR-NOVARTISPH-NVSC2022BR110407

PATIENT
  Sex: Male
  Weight: 70 kg

DRUGS (5)
  1. DIOVAN HCT [Suspect]
     Active Substance: HYDROCHLOROTHIAZIDE\VALSARTAN
     Indication: Product used for unknown indication
     Dosage: 80/12.5 OT
     Route: 065
     Dates: start: 2001, end: 2014
  2. DIOVAN [Suspect]
     Active Substance: VALSARTAN
     Indication: Product used for unknown indication
     Dosage: UNK
     Route: 065
  3. BRINZOLAMIDE\TIMOLOL MALEATE [Suspect]
     Active Substance: BRINZOLAMIDE\TIMOLOL MALEATE
     Indication: Intraocular pressure increased
     Dosage: UNK (1 DROP EVERY 12 HOURS)
     Route: 065
     Dates: start: 2016, end: 20220510
  4. BRINZOLAMIDE\TIMOLOL MALEATE [Suspect]
     Active Substance: BRINZOLAMIDE\TIMOLOL MALEATE
     Dosage: UNK
     Route: 065
  5. SIMBRINZA [Suspect]
     Active Substance: BRIMONIDINE TARTRATE\BRINZOLAMIDE
     Indication: Product used for unknown indication
     Dosage: UNK (8 ML)
     Route: 065

REACTIONS (8)
  - Seizure [Recovered/Resolved]
  - Cerebrovascular accident [Unknown]
  - Bradycardia [Unknown]
  - Cerebellar tumour [Unknown]
  - Loss of consciousness [Unknown]
  - Diplegia [Unknown]
  - Intraocular pressure increased [Unknown]
  - Illness [Unknown]
